FAERS Safety Report 9517310 (Version 1)
Quarter: 2013Q3

REPORT INFORMATION
  Report Type: Spontaneous
  Country: US (occurrence: US)
  Receive Date: 20130911
  Receipt Date: 20130911
  Transmission Date: 20140515
  Serious: No
  Sender: FDA-Public Use
  Company Number: US-ASTRAZENECA-2013SE61009

PATIENT
  Age: 63 Year
  Sex: Female
  Weight: 77.6 kg

DRUGS (4)
  1. SYMBICORT [Suspect]
     Indication: CHRONIC OBSTRUCTIVE PULMONARY DISEASE
     Dosage: 160/4.5, 2 PUFFS BID
     Route: 055
     Dates: start: 201207
  2. DUONEBS [Concomitant]
     Indication: CHRONIC OBSTRUCTIVE PULMONARY DISEASE
     Route: 055
  3. SPIRIVA [Concomitant]
     Indication: CHRONIC OBSTRUCTIVE PULMONARY DISEASE
     Route: 055
  4. POTASSIUM CHLORIDE [Concomitant]
     Route: 048

REACTIONS (11)
  - Adverse event [Unknown]
  - Ageusia [Not Recovered/Not Resolved]
  - Swelling [Not Recovered/Not Resolved]
  - Inflammation [Not Recovered/Not Resolved]
  - Bone pain [Not Recovered/Not Resolved]
  - Costochondritis [Not Recovered/Not Resolved]
  - Cough [Not Recovered/Not Resolved]
  - Muscle spasms [Not Recovered/Not Resolved]
  - Muscle spasms [Not Recovered/Not Resolved]
  - Intentional drug misuse [Not Recovered/Not Resolved]
  - Drug ineffective [Not Recovered/Not Resolved]
